FAERS Safety Report 9678844 (Version 1)
Quarter: 2013Q4

REPORT INFORMATION
  Report Type: Spontaneous
  Country: FR (occurrence: FR)
  Receive Date: 20131108
  Receipt Date: 20131108
  Transmission Date: 20140711
  Serious: Yes (Hospitalization)
  Sender: FDA-Public Use
  Company Number: FR-SAVIENT-2013S1000112

PATIENT
  Age: 49 Year
  Sex: Male

DRUGS (5)
  1. KRYSTEXXA [Suspect]
     Indication: GOUT
     Route: 042
     Dates: start: 20130326, end: 201308
  2. SOLUMEDROL [Concomitant]
     Indication: ALLERGY PROPHYLAXIS
     Dates: start: 20130326, end: 201308
  3. POLARAMINE [Concomitant]
     Indication: ALLERGY PROPHYLAXIS
     Dates: start: 20130326, end: 201308
  4. COZAAR [Concomitant]
     Indication: HYPERTENSION
     Dosage: 50-100 MG/DAY
     Route: 048
  5. INDOCID [Concomitant]
     Indication: PAIN
     Route: 048

REACTIONS (2)
  - Electrocardiogram abnormal [Unknown]
  - Paraesthesia [Recovered/Resolved]
